FAERS Safety Report 9546576 (Version 2)
Quarter: 2013Q4

REPORT INFORMATION
  Report Type: Spontaneous
  Country: US (occurrence: US)
  Receive Date: 20130924
  Receipt Date: 20131001
  Transmission Date: 20140711
  Serious: Yes (Death)
  Sender: FDA-Public Use
  Company Number: US-AMGEN-USASP2013065775

PATIENT
  Age: 93 Year
  Sex: Female
  Weight: 38.69 kg

DRUGS (4)
  1. PROLIA [Suspect]
     Indication: OSTEOPOROSIS POSTMENOPAUSAL
     Dosage: 60 MG, Q6MO
     Route: 058
     Dates: start: 20101014
  2. PROLIA [Suspect]
     Route: 058
  3. PROLIA [Suspect]
     Route: 058
  4. PROLIA [Suspect]
     Route: 058

REACTIONS (1)
  - Death [Fatal]
